FAERS Safety Report 16474693 (Version 4)
Quarter: 2021Q2

REPORT INFORMATION
  Report Type: Report from Study
  Country: US (occurrence: US)
  Receive Date: 20190625
  Receipt Date: 20210412
  Transmission Date: 20210716
  Serious: Yes (Hospitalization, Other)
  Sender: FDA-Public Use
  Company Number: US-GILEAD-2019-0415026

PATIENT
  Age: 71 Year
  Sex: Male

DRUGS (2)
  1. IDELALISIB [Suspect]
     Active Substance: IDELALISIB
     Indication: CHRONIC LYMPHOCYTIC LEUKAEMIA
     Dosage: 100 MG, BID
     Route: 048
     Dates: start: 201705, end: 202103
  2. IDELALISIB [Suspect]
     Active Substance: IDELALISIB
     Dosage: 150 MG, BID
     Route: 048
     Dates: start: 20170605

REACTIONS (3)
  - Gastritis fungal [Unknown]
  - Diarrhoea [Not Recovered/Not Resolved]
  - Diarrhoea [Not Recovered/Not Resolved]

NARRATIVE: CASE EVENT DATE: 202101
